FAERS Safety Report 15046600 (Version 3)
Quarter: 2018Q4

REPORT INFORMATION
  Report Type: Spontaneous
  Country: US (occurrence: US)
  Receive Date: 20180621
  Receipt Date: 20181218
  Transmission Date: 20190204
  Serious: Yes (Disabling)
  Sender: FDA-Public Use
  Company Number: US-OTSUKA-2018_016488

PATIENT
  Sex: Male

DRUGS (17)
  1. METFORMIN [Concomitant]
     Active Substance: METFORMIN HYDROCHLORIDE
     Indication: DIABETES MELLITUS
     Dosage: 1000 MG, BID
     Route: 048
  2. ACETAMINOPHEN. [Concomitant]
     Active Substance: ACETAMINOPHEN
     Indication: HEADACHE
  3. TRAZODONE [Concomitant]
     Active Substance: TRAZODONE HYDROCHLORIDE
     Indication: INSOMNIA
     Dosage: 250 MG, QHS
     Route: 048
  4. ABILIFY [Suspect]
     Active Substance: ARIPIPRAZOLE
     Indication: AGITATION
     Dosage: 5 MG, QD
     Route: 065
  5. PRAZOSIN. [Concomitant]
     Active Substance: PRAZOSIN
     Indication: NIGHTMARE
     Dosage: 20 MG, QHS
     Route: 048
  6. RISPERIDONE. [Concomitant]
     Active Substance: RISPERIDONE
     Indication: AFFECTIVE DISORDER
     Dosage: 3 MG, QHS
     Route: 048
  7. ABILIFY [Suspect]
     Active Substance: ARIPIPRAZOLE
     Indication: POST-TRAUMATIC STRESS DISORDER
  8. ABILIFY [Suspect]
     Active Substance: ARIPIPRAZOLE
     Indication: MAJOR DEPRESSION
     Dosage: 2 MG, QD
     Route: 065
     Dates: start: 201210
  9. ACETAMINOPHEN. [Concomitant]
     Active Substance: ACETAMINOPHEN
     Indication: PAIN
     Dosage: 650 MG, QID
     Route: 048
  10. LAMOTRIGINE. [Concomitant]
     Active Substance: LAMOTRIGINE
     Indication: AFFECTIVE DISORDER
     Dosage: 20 MG, UNK
     Route: 048
  11. RANITIDINE. [Concomitant]
     Active Substance: RANITIDINE
     Indication: GASTROOESOPHAGEAL REFLUX DISEASE
     Dosage: 150 MG, BID
     Route: 048
  12. ABILIFY [Suspect]
     Active Substance: ARIPIPRAZOLE
     Indication: IRRITABILITY
     Dosage: 20 MG, QD
     Route: 065
  13. ASPIRIN (E.C.) [Concomitant]
     Active Substance: ASPIRIN
     Indication: ANTICOAGULANT THERAPY
     Dosage: 81 MG, UNK
     Route: 048
  14. CITALOPRAM [Concomitant]
     Active Substance: CITALOPRAM HYDROBROMIDE
     Indication: DEPRESSION
     Dosage: 20 MG, QD
     Route: 048
  15. CITALOPRAM [Concomitant]
     Active Substance: CITALOPRAM HYDROBROMIDE
     Indication: POST-TRAUMATIC STRESS DISORDER
  16. ABILIFY [Suspect]
     Active Substance: ARIPIPRAZOLE
     Indication: ANXIETY
     Dosage: 30 MG, QD
     Route: 065
     Dates: end: 201507
  17. ABILIFY [Suspect]
     Active Substance: ARIPIPRAZOLE
     Indication: INSOMNIA

REACTIONS (12)
  - Disability [Unknown]
  - Condition aggravated [Unknown]
  - Emotional distress [Unknown]
  - Injury [Unknown]
  - Condition aggravated [Unknown]
  - Compulsive shopping [Recovered/Resolved]
  - Anxiety [Unknown]
  - Anhedonia [Unknown]
  - Product use in unapproved indication [Unknown]
  - Economic problem [Unknown]
  - Gambling disorder [Recovered/Resolved]
  - Pain [Unknown]

NARRATIVE: CASE EVENT DATE: 201210
